FAERS Safety Report 23600867 (Version 2)
Quarter: 2024Q2

REPORT INFORMATION
  Report Type: Spontaneous
  Country: BR (occurrence: BR)
  Receive Date: 20240306
  Receipt Date: 20240518
  Transmission Date: 20240717
  Serious: Yes (Other)
  Sender: FDA-Public Use
  Company Number: BR-CELLTRION INC.-2024BR005528

PATIENT

DRUGS (2)
  1. INFLIXIMAB [Suspect]
     Active Substance: INFLIXIMAB
     Indication: Colitis ulcerative
     Dosage: EVERY 8 WEEKS
     Route: 065
     Dates: start: 202307
  2. IRON [Concomitant]
     Active Substance: IRON

REACTIONS (5)
  - Colitis ulcerative [Not Recovered/Not Resolved]
  - Loss of personal independence in daily activities [Unknown]
  - Fatigue [Unknown]
  - Pain [Unknown]
  - Therapy partial responder [Unknown]
